FAERS Safety Report 7805671-5 (Version None)
Quarter: 2011Q4

REPORT INFORMATION
  Report Type: 
  Country: None (occurrence: None)
  Receive Date: 20111011
  Receipt Date: 20110930
  Transmission Date: 20120403
  Serious: Yes (Hospitalization)
  Sender: FDA-Public Use
  Company Number: US-BIOGENIDEC-2011BI012416

PATIENT
  Age: 28 Year
  Sex: Female

DRUGS (4)
  1. ANTIDEPRESSANT (NOS) [Concomitant]
  2. TYSABRI [Suspect]
     Indication: MULTIPLE SCLEROSIS
     Route: 042
     Dates: start: 20081113, end: 20101230
  3. SYNTHROID [Concomitant]
  4. TYSABRI [Suspect]
     Route: 042
     Dates: start: 20070913, end: 20080411

REACTIONS (1)
  - CAESAREAN SECTION [None]
